FAERS Safety Report 7486780-X (Version None)
Quarter: 2011Q2

REPORT INFORMATION
  Report Type: 
  Country: None (occurrence: None)
  Receive Date: 20110517
  Receipt Date: 20101123
  Transmission Date: 20111010
  Serious: No
  Sender: FDA-Public Use
  Company Number: US-NOVEN-ALL1-2010-04835

PATIENT
  Sex: Male
  Weight: 61.224 kg

DRUGS (3)
  1. DAYTRANA [Suspect]
     Dosage: 10 MG, 1X/DAY:QD
     Route: 062
     Dates: start: 20090101, end: 20100910
  2. MELATONIN [Concomitant]
     Dosage: UNK, AS REQ'D
     Route: 065
  3. DAYTRANA [Suspect]
     Dosage: 15 MG, 1X/DAY:QD
     Route: 062
     Dates: start: 20100911

REACTIONS (6)
  - ANAEMIA [None]
  - BLOOD CHOLESTEROL ABNORMAL [None]
  - WRONG TECHNIQUE IN DRUG USAGE PROCESS [None]
  - DISTURBANCE IN ATTENTION [None]
  - DEPRESSION [None]
  - PRODUCT QUALITY ISSUE [None]
